FAERS Safety Report 14690202 (Version 1)
Quarter: 2018Q1

REPORT INFORMATION
  Report Type: Spontaneous
  Country: FR (occurrence: FR)
  Receive Date: 20180328
  Receipt Date: 20180328
  Transmission Date: 20180509
  Serious: Yes (Life-Threatening)
  Sender: FDA-Public Use
  Company Number: FR-TEVA-2018-FR-871668

PATIENT
  Age: 59 Year
  Sex: Male
  Weight: 92 kg

DRUGS (1)
  1. TRAMADOL. [Suspect]
     Active Substance: TRAMADOL
     Indication: BACK PAIN
     Dosage: 1 SINGLE SHOT
     Route: 048

REACTIONS (2)
  - Vomiting [Recovered/Resolved]
  - Hypoglycaemia [Recovered/Resolved]
